FAERS Safety Report 8015686-2 (Version None)
Quarter: 2011Q4

REPORT INFORMATION
  Report Type: 
  Country: None (occurrence: None)
  Receive Date: 20111228
  Receipt Date: 20111228
  Transmission Date: 20120403
  Serious: Yes (Life-Threatening, Other)
  Sender: FDA-Public Use
  Company Number: None

PATIENT
  Sex: Female

DRUGS (1)
  1. CELEBREX [Suspect]
     Indication: ROTATOR CUFF SYNDROME
     Dosage: 1 QD PO
     Route: 048
     Dates: start: 20111122

REACTIONS (3)
  - DEAFNESS TRANSITORY [None]
  - MEMORY IMPAIRMENT [None]
  - FEELING ABNORMAL [None]
